FAERS Safety Report 4558358-9 (Version None)
Quarter: 2005Q1

REPORT INFORMATION
  Report Type: 
  Country: None (occurrence: None)
  Receive Date: 20050103
  Receipt Date: 20041011
  Transmission Date: 20050727
  Serious: Yes (Other)
  Sender: FDA-Public Use
  Company Number: 2004UW21272

PATIENT
  Sex: Female

DRUGS (9)
  1. CRESTOR [Suspect]
  2. SYNTHROID [Concomitant]
  3. VITAMIN E [Concomitant]
  4. VITAMIN C [Concomitant]
  5. CALCIUM GLUCONATE [Concomitant]
  6. MAGNESIUM [Concomitant]
  7. MULTI-VITAMINS [Concomitant]
  8. ACETYLSALICYLIC ACID SRT [Concomitant]
  9. CHOLEST-OFF [Concomitant]

REACTIONS (3)
  - ASTHENIA [None]
  - FACE OEDEMA [None]
  - FLUSHING [None]
